FAERS Safety Report 6473752-7 (Version None)
Quarter: 2009Q4

REPORT INFORMATION
  Report Type: 
  Country: None (occurrence: None)
  Receive Date: 20091204
  Receipt Date: 20091124
  Transmission Date: 20100525
  Serious: Yes (Other)
  Sender: FDA-Public Use
  Company Number: SE-PFIZER INC-2009302928

PATIENT
  Sex: Male

DRUGS (2)
  1. VFEND [Suspect]
     Indication: CEREBRAL ASPERGILLOSIS
     Dosage: 800 MG, UNK
     Dates: start: 20070101
  2. LYRICA [Suspect]

REACTIONS (3)
  - DERMATITIS BULLOUS [None]
  - LIP BLISTER [None]
  - SUBCORNEAL PUSTULAR DERMATOSIS [None]
